FAERS Safety Report 16736199 (Version 2)
Quarter: 2019Q3

REPORT INFORMATION
  Report Type: Spontaneous
  Country: US (occurrence: US)
  Receive Date: 20190823
  Receipt Date: 20190918
  Transmission Date: 20191005
  Serious: Yes (Other)
  Sender: FDA-Public Use
  Company Number: US-JNJFOC-20190824278

PATIENT
  Sex: Male
  Weight: 70.82 kg

DRUGS (1)
  1. REMICADE [Suspect]
     Active Substance: INFLIXIMAB
     Indication: COLITIS ULCERATIVE
     Route: 042
     Dates: start: 2011, end: 2012

REACTIONS (6)
  - Drug ineffective [Unknown]
  - Gastrointestinal inflammation [Unknown]
  - Pouchitis [Unknown]
  - Colectomy [Unknown]
  - Inflammation [Unknown]
  - Autoimmune disorder [Unknown]

NARRATIVE: CASE EVENT DATE: 2011
